FAERS Safety Report 21962606 (Version 2)
Quarter: 2023Q1

REPORT INFORMATION
  Report Type: Spontaneous
  Country: CN (occurrence: CN)
  Receive Date: 20230207
  Receipt Date: 20230213
  Transmission Date: 20230418
  Serious: Yes (Other)
  Sender: FDA-Public Use
  Company Number: CN-002147023-NVSC2023CN025710

PATIENT
  Age: 54 Year
  Sex: Male
  Weight: 60 kg

DRUGS (1)
  1. VORICONAZOLE [Suspect]
     Active Substance: VORICONAZOLE
     Indication: Aspergillus infection
     Dosage: 0.20 G, BID (Q12H)
     Route: 048
     Dates: start: 20221225, end: 20230129

REACTIONS (2)
  - Hepatic enzyme abnormal [Recovering/Resolving]
  - Drug-induced liver injury [Unknown]

NARRATIVE: CASE EVENT DATE: 20230106
